FAERS Safety Report 9988858 (Version 1)
Quarter: 2014Q1

REPORT INFORMATION
  Report Type: Spontaneous
  Country: BR (occurrence: BR)
  Receive Date: 20140310
  Receipt Date: 20140310
  Transmission Date: 20141002
  Serious: Yes (Other)
  Sender: FDA-Public Use
  Company Number: BR-SA-2014SA022781

PATIENT
  Age: 82 Year
  Sex: Female
  Weight: 61 kg

DRUGS (2)
  1. LANTUS [Suspect]
     Indication: TYPE 2 DIABETES MELLITUS
     Dosage: 3ML CARTRIDGE?STARTED: APPROX. 12 YEAR
     Route: 058
  2. AUTOPEN 24 [Concomitant]
     Indication: DEVICE THERAPY

REACTIONS (9)
  - Femur fracture [Recovered/Resolved]
  - Pain [Recovered/Resolved]
  - Arthritis [Not Recovered/Not Resolved]
  - Bone erosion [Recovered/Resolved]
  - Hypoglycaemia [Recovered/Resolved]
  - Apathy [Recovered/Resolved]
  - Unresponsive to stimuli [Recovered/Resolved]
  - Hyperhidrosis [Recovered/Resolved]
  - Osteoporosis [Not Recovered/Not Resolved]
